FAERS Safety Report 7603064-7 (Version None)
Quarter: 2011Q3

REPORT INFORMATION
  Report Type: 
  Country: None (occurrence: None)
  Receive Date: 20110711
  Receipt Date: 20110711
  Transmission Date: 20111222
  Serious: No
  Sender: FDA-Public Use
  Company Number: None

PATIENT
  Age: 7 Year
  Sex: Male
  Weight: 36.2878 kg

DRUGS (1)
  1. BANANA BOAT KIDS TEAR FREE SPF 30 BANA BOAT [Suspect]
     Indication: PROPHYLAXIS AGAINST SOLAR RADIATION
     Dosage: SPRAY ON UNTIL U SEE IT AS NEEDED EXPOSER TOP
     Route: 061
     Dates: start: 20110705, end: 20110705

REACTIONS (1)
  - SUNBURN [None]
